FAERS Safety Report 5902821-2 (Version None)
Quarter: 2008Q3

REPORT INFORMATION
  Report Type: 
  Country: None (occurrence: None)
  Receive Date: 20080926
  Receipt Date: 20080910
  Transmission Date: 20090109
  Serious: Yes (Death, Other)
  Sender: FDA-Public Use
  Company Number: 2008EU001918

PATIENT
  Age: 69 Year
  Sex: Female

DRUGS (10)
  1. PROGRAF [Suspect]
     Indication: RENAL TRANSPLANT
     Dosage: 0.4 MG, UID/QD; 0.3 MG, UID/QD; 0.1 MG, UID/QD
     Dates: end: 20080811
  2. PROGRAF [Suspect]
     Indication: RENAL TRANSPLANT
     Dosage: 0.4 MG, UID/QD; 0.3 MG, UID/QD; 0.1 MG, UID/QD
     Dates: start: 20080812, end: 20080813
  3. PROGRAF [Suspect]
     Indication: RENAL TRANSPLANT
     Dosage: 0.4 MG, UID/QD; 0.3 MG, UID/QD; 0.1 MG, UID/QD
     Dates: start: 20080815
  4. TIENAM(IMIPENEM, CILASTATIN SODIUM) [Suspect]
     Indication: RENAL FAILURE
     Dosage: 1.5 G, UID/QD
     Dates: start: 20080803, end: 20080813
  5. FLAGYL [Concomitant]
  6. VANCOMYCIN HYDROCHLORIDE [Concomitant]
  7. CANCIDAS (CASPOFUNGIN) [Concomitant]
  8. PANTOPRAZOLE SODIUM [Concomitant]
  9. CELLCEPT [Concomitant]
  10. METHYLPREDNISOLONE (METHYLPREDNISOLONE SODIUM SUCCINATE) [Concomitant]

REACTIONS (4)
  - ACUTE RESPIRATORY DISTRESS SYNDROME [None]
  - BLOOD PRESSURE FLUCTUATION [None]
  - CONVULSION [None]
  - DRUG LEVEL INCREASED [None]
